FAERS Safety Report 14931113 (Version 1)
Quarter: 2018Q2

REPORT INFORMATION
  Report Type: Report from Study
  Country: US (occurrence: US)
  Receive Date: 20180524
  Receipt Date: 20180524
  Transmission Date: 20180711
  Serious: Yes (Hospitalization)
  Sender: FDA-Public Use
  Company Number: US-ROCHE-2122043

PATIENT
  Sex: Female

DRUGS (13)
  1. LORATADINE. [Concomitant]
     Active Substance: LORATADINE
  2. GUAIFENESIN. [Concomitant]
     Active Substance: GUAIFENESIN
  3. ATEZOLIZUMAB. [Suspect]
     Active Substance: ATEZOLIZUMAB
     Indication: NON-SMALL CELL LUNG CANCER
     Route: 042
     Dates: start: 20180424
  4. ERIBULIN [Suspect]
     Active Substance: ERIBULIN
     Indication: NON-SMALL CELL LUNG CANCER
     Dosage: 2 WEEKS ON 1 WEEK OFF
     Route: 042
     Dates: start: 20180501
  5. VAGIFEM [Concomitant]
     Active Substance: ESTRADIOL
  6. VENLAFAXINE [Concomitant]
     Active Substance: VENLAFAXINE HYDROCHLORIDE
  7. AZELASTINE. [Concomitant]
     Active Substance: AZELASTINE HYDROCHLORIDE
  8. LASIX [Concomitant]
     Active Substance: FUROSEMIDE
  9. MELATONIN [Concomitant]
     Active Substance: MELATONIN
  10. ONDANSETRON [Concomitant]
     Active Substance: ONDANSETRON
  11. COBIMETINIB. [Suspect]
     Active Substance: COBIMETINIB
     Indication: NON-SMALL CELL LUNG CANCER
     Dosage: FOR 21 DAYS
     Route: 048
  12. DIPHENHYDRAMINE. [Concomitant]
     Active Substance: DIPHENHYDRAMINE
  13. ENOXAPARIN [Concomitant]
     Active Substance: ENOXAPARIN

REACTIONS (3)
  - Urinary tract infection [Unknown]
  - Lung infection [Unknown]
  - Pneumonitis [Unknown]

NARRATIVE: CASE EVENT DATE: 20180505
